FAERS Safety Report 9483133 (Version 1)
Quarter: 2013Q3

REPORT INFORMATION
  Report Type: Report from Study
  Country: US (occurrence: US)
  Receive Date: 20130828
  Receipt Date: 20130828
  Transmission Date: 20140515
  Serious: Yes (Hospitalization, Other)
  Sender: FDA-Public Use
  Company Number: US-ASTRAZENECA-2013SE64407

PATIENT
  Age: 80 Year
  Sex: Female
  Weight: 72.6 kg

DRUGS (5)
  1. TOPROL XL [Suspect]
     Indication: HYPERTENSION
     Route: 048
     Dates: start: 200212, end: 20130812
  2. TOPROL XL [Suspect]
     Indication: HYPERTENSION
     Route: 048
     Dates: start: 2009, end: 2009
  3. TOPROL XL [Suspect]
     Indication: HYPERTENSION
     Route: 048
  4. TRIAMTERENE HCTZ [Suspect]
     Indication: OEDEMA PERIPHERAL
     Dosage: 37.5 MG   25 MG PRN
     Route: 065
  5. SYNTHROID [Concomitant]
     Indication: THYROID DISORDER
     Dosage: UNKNOWN DAILY
     Route: 048
     Dates: start: 1975

REACTIONS (21)
  - Nodule [Not Recovered/Not Resolved]
  - Sinus disorder [Unknown]
  - Lung disorder [Not Recovered/Not Resolved]
  - Vocal cord disorder [Unknown]
  - Lung neoplasm malignant [Unknown]
  - Blood pressure increased [Recovered/Resolved]
  - Heart rate increased [Recovered/Resolved]
  - Atrial fibrillation [Unknown]
  - Blood pressure inadequately controlled [Unknown]
  - Blood sodium abnormal [Not Recovered/Not Resolved]
  - Blood potassium abnormal [Not Recovered/Not Resolved]
  - Body height decreased [Not Recovered/Not Resolved]
  - Mucous membrane disorder [Not Recovered/Not Resolved]
  - Malaise [Not Recovered/Not Resolved]
  - Thyroid disorder [Not Recovered/Not Resolved]
  - Fear of death [Unknown]
  - Agitation [Unknown]
  - Dyspnoea [Not Recovered/Not Resolved]
  - Weight increased [Not Recovered/Not Resolved]
  - Asthenia [Unknown]
  - Drug dose omission [Unknown]
